FAERS Safety Report 4865402-8 (Version None)
Quarter: 2005Q4

REPORT INFORMATION
  Report Type: 
  Country: None (occurrence: None)
  Receive Date: 20051220
  Receipt Date: 20051206
  Transmission Date: 20060501
  Serious: Yes (Death)
  Sender: FDA-Public Use
  Company Number: R301382-PAP-USA

PATIENT
  Age: 79 Year
  Sex: Female

DRUGS (1)
  1. ACIPHEX [Suspect]
     Indication: OESOPHAGITIS
     Dosage: ORAL
     Route: 048

REACTIONS (1)
  - CORONARY ARTERY DISEASE [None]
